FAERS Safety Report 9617959 (Version 1)
Quarter: 2013Q4

REPORT INFORMATION
  Report Type: Spontaneous
  Country: CA (occurrence: CA)
  Receive Date: 20131011
  Receipt Date: 20131011
  Transmission Date: 20140711
  Serious: Yes (Hospitalization)
  Sender: FDA-Public Use
  Company Number: PHHY2013CA113110

PATIENT
  Age: 75 Year
  Sex: Female

DRUGS (5)
  1. SERTRALINE [Suspect]
  2. LORAZEPAM [Suspect]
     Indication: DEPRESSION
  3. GABAPENTIN [Concomitant]
     Indication: FIBROMYALGIA
     Dosage: 1800 MG/DAY
  4. GABAPENTIN [Concomitant]
     Indication: POST HERPETIC NEURALGIA
     Dosage: 1000 MG (400MG, AND 600MG AT BEDTIME)
  5. GABAPENTIN [Concomitant]
     Dosage: 1400 MG/DAY

REACTIONS (1)
  - Fall [Unknown]
